APPROVED DRUG PRODUCT: DEXTROAMP SACCHARATE, AMP ASPARTATE, DEXTROAMP SULFATE AND AMP SULFATE
Active Ingredient: AMPHETAMINE ASPARTATE; AMPHETAMINE SULFATE; DEXTROAMPHETAMINE SACCHARATE; DEXTROAMPHETAMINE SULFATE
Strength: 3.125MG;3.125MG;3.125MG;3.125MG
Dosage Form/Route: CAPSULE, EXTENDED RELEASE;ORAL
Application: A210876 | Product #001 | TE Code: AB2
Applicant: TEVA PHARMACEUTICALS USA INC
Approved: Jan 31, 2022 | RLD: No | RS: No | Type: RX